FAERS Safety Report 23513147 (Version 1)
Quarter: 2024Q1

REPORT INFORMATION
  Report Type: Spontaneous
  Country: TR (occurrence: TR)
  Receive Date: 20240212
  Receipt Date: 20240212
  Transmission Date: 20240409
  Serious: Yes (Other)
  Sender: FDA-Public Use
  Company Number: TR-002147023-NVSC2020TR087995

PATIENT
  Age: 39 Year
  Sex: Male

DRUGS (5)
  1. TEGRETOL XR [Suspect]
     Active Substance: CARBAMAZEPINE
     Indication: Epilepsy
     Dosage: 200 MG
     Route: 065
  2. TEGRETOL XR [Suspect]
     Active Substance: CARBAMAZEPINE
     Dosage: 400 MG (1.5 X 2)
     Route: 065
  3. TEGRETOL XR [Suspect]
     Active Substance: CARBAMAZEPINE
     Dosage: 400 MG (DIVITAB) (1X 2)
     Route: 065
  4. KEPPRA [Concomitant]
     Active Substance: LEVETIRACETAM
     Indication: Epilepsy
     Dosage: UNK
     Route: 065
  5. EPIX [Concomitant]
     Indication: Epilepsy
     Dosage: UNK
     Route: 065

REACTIONS (4)
  - Seizure [Unknown]
  - Brain neoplasm [Unknown]
  - Dizziness [Unknown]
  - Wrong technique in product usage process [Unknown]
